FAERS Safety Report 10749522 (Version 3)
Quarter: 2016Q3

REPORT INFORMATION
  Report Type: Spontaneous
  Country: JP (occurrence: JP)
  Receive Date: 20150129
  Receipt Date: 20160823
  Transmission Date: 20161109
  Serious: Yes (Hospitalization, Other)
  Sender: FDA-Public Use
  Company Number: JP-PFIZER INC-2015003702

PATIENT
  Age: 8 Year
  Sex: Male
  Weight: 34 kg

DRUGS (8)
  1. GENOTROPIN [Suspect]
     Active Substance: SOMATROPIN
     Dosage: 1.75 MG, 1X/DAY
     Route: 058
     Dates: start: 20140704, end: 20141106
  2. ABILIFY [Suspect]
     Active Substance: ARIPIPRAZOLE
     Indication: OPPOSITIONAL DEFIANT DISORDER
     Dosage: 0.4 G, 2X/DAY
     Route: 048
     Dates: start: 20131022
  3. GENOTROPIN [Suspect]
     Active Substance: SOMATROPIN
     Indication: PRADER-WILLI SYNDROME
     Dosage: UNK
     Route: 058
  4. STRATTERA [Concomitant]
     Active Substance: ATOMOXETINE HYDROCHLORIDE
     Indication: OPPOSITIONAL DEFIANT DISORDER
     Dosage: UNK
     Route: 048
     Dates: start: 20140905
  5. GENOTROPIN [Suspect]
     Active Substance: SOMATROPIN
     Dosage: 1.05 MG, CYCLIC (6X/WEEK)
     Route: 058
     Dates: start: 20120419, end: 201212
  6. STRATTERA [Concomitant]
     Active Substance: ATOMOXETINE HYDROCHLORIDE
     Dosage: 9 ML, 2X/DAY
     Route: 048
     Dates: start: 20140927, end: 20141210
  7. GENOTROPIN [Suspect]
     Active Substance: SOMATROPIN
     Dosage: 1.5 MG, 1X/DAY
     Route: 058
     Dates: start: 20141107, end: 20150104
  8. TEGRETOL [Concomitant]
     Active Substance: CARBAMAZEPINE
     Indication: OPPOSITIONAL DEFIANT DISORDER
     Dosage: 0.1 G, 2X/DAY
     Route: 048
     Dates: start: 20141210

REACTIONS (2)
  - Diabetes mellitus [Recovering/Resolving]
  - Diabetic ketoacidosis [Recovered/Resolved]

NARRATIVE: CASE EVENT DATE: 201410
